FAERS Safety Report 16474233 (Version 1)
Quarter: 2019Q2

REPORT INFORMATION
  Report Type: Spontaneous
  Country: US (occurrence: US)
  Receive Date: 20190515
  Receipt Date: 20190515
  Transmission Date: 20190711
  Serious: No
  Sender: FDA-Public Use
  Company Number: None

PATIENT
  Age: 62 Year
  Sex: Female
  Weight: 74.39 kg

DRUGS (1)
  1. STELARA [Suspect]
     Active Substance: USTEKINUMAB
     Indication: PSORIATIC ARTHROPATHY
     Dosage: INJECT 45MG  SUBCUTANEOUSLY AT  DAY  0 AND DAY 28 AS DIRECTED
     Route: 058
     Dates: start: 201710

REACTIONS (1)
  - Visual impairment [None]
